FAERS Safety Report 9501041 (Version 1)
Quarter: 2013Q1

REPORT INFORMATION
  Report Type: Spontaneous
  Country: US (occurrence: None)
  Receive Date: 20130116
  Receipt Date: 20130116
  Transmission Date: 20140127
  Serious: Yes (Hospitalization)
  Sender: FDA-Public Use
  Company Number: 1209USA010204

PATIENT
  Age: 73 Year
  Sex: Female
  Weight: 78 kg

DRUGS (2)
  1. INVANZ [Suspect]
     Indication: WOUND
     Route: 042
     Dates: end: 201209
  2. INVANZ [Suspect]
     Indication: ULCER
     Route: 042
     Dates: end: 201209

REACTIONS (3)
  - Decreased appetite [None]
  - Asthenia [None]
  - Dizziness [None]
